FAERS Safety Report 15387496 (Version 3)
Quarter: 2025Q3

REPORT INFORMATION
  Report Type: Spontaneous
  Country: IL (occurrence: IL)
  Receive Date: 20180914
  Receipt Date: 20250826
  Transmission Date: 20251021
  Serious: Yes (Other)
  Sender: MERCK SHARP & DOHME LLC
  Company Number: IL-009507513-1809ISR004799

PATIENT
  Age: 4 Year
  Sex: Male

DRUGS (2)
  1. CASPOFUNGIN ACETATE [Suspect]
     Active Substance: CASPOFUNGIN ACETATE
     Indication: Mucormycosis
     Dosage: DOSE DESCRIPTION : 50 MG/M2, QD?DAILY DOSE : 50 MILLIGRAM/SQ. METER?REGIMEN DOSE : 700  MILLIGRAM...
  2. liposomal amphotericin B (LAMB) [Concomitant]
     Indication: Mucormycosis
     Dosage: DOSE DESCRIPTION : 5 MG/KG, QD?DAILY DOSE : 5 MILLIGRAM/KILOGRAM

REACTIONS (3)
  - Blindness [Recovering/Resolving]
  - Mucormycosis [Recovering/Resolving]
  - Drug ineffective [Unknown]
